FAERS Safety Report 6045339-1 (Version None)
Quarter: 2009Q1

REPORT INFORMATION
  Report Type: 
  Country: None (occurrence: None)
  Receive Date: 20090121
  Receipt Date: 20090113
  Transmission Date: 20090719
  Serious: Yes (Other)
  Sender: FDA-Public Use
  Company Number: NL-BAYER-200821771GPV

PATIENT
  Age: 58 Year
  Sex: Male

DRUGS (18)
  1. NEXAVAR [Suspect]
     Indication: HEPATIC NEOPLASM MALIGNANT
     Dosage: TOTAL DAILY DOSE: 200 MG
     Route: 048
     Dates: start: 20080704, end: 20080101
  2. NEXAVAR [Suspect]
     Dosage: TOTAL DAILY DOSE: 600 MG
     Route: 048
     Dates: start: 20080701
  3. NEXAVAR [Suspect]
     Dosage: TOTAL DAILY DOSE: 200 MG
     Route: 048
     Dates: start: 20080909, end: 20080923
  4. NEXAVAR [Suspect]
     Route: 048
     Dates: start: 20080923, end: 20081010
  5. NEXAVAR [Suspect]
     Dosage: TOTAL DAILY DOSE: 400 MG
     Route: 048
     Dates: start: 20080701
  6. NEXAVAR [Suspect]
     Route: 048
     Dates: start: 20080625, end: 20080701
  7. NEXAVAR [Suspect]
     Dosage: TOTAL DAILY DOSE: 800 MG
     Route: 048
     Dates: start: 20080701
  8. NEXAVAR [Suspect]
     Dosage: TOTAL DAILY DOSE: 800 MG
     Route: 048
     Dates: start: 20081010
  9. MORPHINE PLASTER (NOS) [Concomitant]
     Indication: DRUG USE FOR UNKNOWN INDICATION
     Route: 003
  10. OMEPRAZOLE [Concomitant]
     Indication: PROPHYLAXIS
     Dosage: TOTAL DAILY DOSE: 40 MG
     Route: 048
  11. AMLODIPINE [Concomitant]
     Indication: HYPERTENSION
     Dosage: TOTAL DAILY DOSE: 10 MG
     Route: 048
  12. PRIMPERAN TAB [Concomitant]
     Indication: NAUSEA
     Dosage: TOTAL DAILY DOSE: 30 MG
     Route: 054
     Dates: end: 20090108
  13. TEMAZEPAM [Concomitant]
     Indication: INSOMNIA
     Dosage: TOTAL DAILY DOSE: 10 MG
     Route: 048
  14. ENALAPRIL MALEATE [Concomitant]
     Indication: HYPERTENSION
     Dosage: TOTAL DAILY DOSE: 20 MG
     Route: 065
  15. ASPIRIN AND DIPYRIDAMOLE [Concomitant]
     Indication: CEREBROVASCULAR ACCIDENT PROPHYLAXIS
     Route: 048
  16. FENTANYL CITRATE [Concomitant]
     Indication: PAIN
     Route: 062
     Dates: end: 20090108
  17. ACETAMINOPHEN [Concomitant]
     Indication: PAIN
     Dosage: TOTAL DAILY DOSE: 1500 MG
     Route: 048
     Dates: end: 20090108
  18. METHYLFENIDAAT [Concomitant]
     Indication: DISTURBANCE IN ATTENTION
     Route: 048

REACTIONS (10)
  - APHASIA [None]
  - CEREBROVASCULAR ACCIDENT [None]
  - GINGIVAL BLEEDING [None]
  - HICCUPS [None]
  - ORAL PAIN [None]
  - OROPHARYNGEAL DISCOMFORT [None]
  - PANOPHTHALMITIS [None]
  - PRURITUS [None]
  - RASH MACULAR [None]
  - VOMITING [None]
